FAERS Safety Report 20640963 (Version 1)
Quarter: 2022Q1

REPORT INFORMATION
  Report Type: Spontaneous
  Country: DK (occurrence: DK)
  Receive Date: 20220327
  Receipt Date: 20220327
  Transmission Date: 20220423
  Serious: Yes (Other)
  Sender: FDA-Public Use
  Company Number: DK-NOVARTISPH-NVSC2022DK067630

PATIENT
  Age: 38 Year
  Sex: Male

DRUGS (6)
  1. NELARABINE [Suspect]
     Active Substance: NELARABINE
     Indication: T-cell lymphoma recurrent
     Dosage: 1500 MG/M2, Q3W ON DAY 1,3,5 FOR 4 COURSES
     Route: 065
  2. DARATUMUMAB [Concomitant]
     Active Substance: DARATUMUMAB
     Indication: T-cell lymphoma recurrent
     Dosage: 16 MG/KG, QW ON DAY 1,
     Route: 042
  3. DEXAMETHASONE [Concomitant]
     Active Substance: DEXAMETHASONE
     Indication: T-cell lymphoma recurrent
     Dosage: 40 MG, Q3W ON DAY 1-4, 4 COURSES
     Route: 065
  4. PEG/L-ASPARAGINASE [Concomitant]
     Active Substance: PEGASPARGASE
     Indication: T-cell lymphoma recurrent
     Dosage: 1000 MG/M2, Q3W ON DAY 1, 4 COURSES
     Route: 030
  5. PEGFILGRASTIM [Concomitant]
     Active Substance: PEGFILGRASTIM
     Indication: T-cell lymphoma recurrent
     Dosage: 6 MG, Q3W ON DAY 7, 4 COURSES
     Route: 058
  6. CYCLOPHOSPHAMIDE [Concomitant]
     Active Substance: CYCLOPHOSPHAMIDE
     Indication: Bone marrow conditioning regimen
     Dosage: 120 MG/KG, UNKNOWN
     Route: 065

REACTIONS (1)
  - Nervous system disorder [Unknown]
